FAERS Safety Report 4836805-2 (Version None)
Quarter: 2005Q4

REPORT INFORMATION
  Report Type: 
  Country: None (occurrence: None)
  Receive Date: 20051123
  Receipt Date: 20051116
  Transmission Date: 20060501
  Serious: Yes (Other)
  Sender: FDA-Public Use
  Company Number: JP-MERCK-0511USA03410

PATIENT
  Age: 63 Year
  Sex: Male

DRUGS (6)
  1. PRINIVIL [Suspect]
     Route: 048
  2. MEDICON [Suspect]
     Route: 048
     Dates: start: 20051114, end: 20051114
  3. DYPHYLLINE [Suspect]
     Route: 065
  4. CRAVIT [Suspect]
     Route: 065
  5. PERSANTIN [Concomitant]
     Route: 065
  6. FENTANYL [Concomitant]
     Route: 065

REACTIONS (1)
  - TYPE I HYPERSENSITIVITY [None]
